FAERS Safety Report 7118490-2 (Version None)
Quarter: 2010Q4

REPORT INFORMATION
  Report Type: 
  Country: None (occurrence: None)
  Receive Date: 20101123
  Receipt Date: 20101109
  Transmission Date: 20110411
  Serious: Yes (Other)
  Sender: FDA-Public Use
  Company Number: PHHY2010MX76822

PATIENT
  Sex: Female

DRUGS (1)
  1. EXFORGE [Suspect]
     Dosage: 160/5 MG, DAILY
     Route: 048

REACTIONS (4)
  - CHROMATURIA [None]
  - PARALYSIS [None]
  - PYREXIA [None]
  - VOMITING [None]
